FAERS Safety Report 11826134 (Version 1)
Quarter: 2015Q4

REPORT INFORMATION
  Report Type: Spontaneous
  Country: GB (occurrence: GB)
  Receive Date: 20151211
  Receipt Date: 20151211
  Transmission Date: 20160305
  Serious: Yes (Hospitalization)
  Sender: FDA-Public Use
  Company Number: GB-SUN PHARMACEUTICAL INDUSTRIES LTD-2015RR-107483

PATIENT

DRUGS (10)
  1. CISPLATIN. [Suspect]
     Active Substance: CISPLATIN
     Indication: BLADDER CANCER
     Dosage: 120 MG, UNK
     Route: 042
     Dates: start: 20151103, end: 20151103
  2. PARACETAMOL [Concomitant]
     Active Substance: ACETAMINOPHEN
     Indication: PRODUCT USED FOR UNKNOWN INDICATION
     Route: 065
  3. DOMPERIDONE [Concomitant]
     Active Substance: DOMPERIDONE
     Indication: PRODUCT USED FOR UNKNOWN INDICATION
     Route: 065
  4. GEMCITABINE [Suspect]
     Active Substance: GEMCITABINE\GEMCITABINE HYDROCHLORIDE
     Indication: BLADDER CANCER
     Dosage: 1700 MG, UNK
     Route: 042
     Dates: start: 20151027, end: 20151027
  5. GEMCITABINE [Suspect]
     Active Substance: GEMCITABINE\GEMCITABINE HYDROCHLORIDE
     Indication: BLADDER CANCER
     Dosage: 1700 MG, UNK
     Route: 042
     Dates: start: 20151103, end: 20151103
  6. BUSCOPAN [Concomitant]
     Active Substance: BUTYLSCOPOLAMINE BROMIDE
     Indication: PRODUCT USED FOR UNKNOWN INDICATION
     Route: 065
  7. CISPLATIN. [Suspect]
     Active Substance: CISPLATIN
     Indication: BLADDER CANCER
     Dosage: 120 MG, UNK
     Route: 042
     Dates: start: 20151027, end: 20151027
  8. NINTEDANIB [Suspect]
     Active Substance: NINTEDANIB
     Indication: BLADDER CANCER
     Dosage: 200 MG, UNK
     Route: 048
     Dates: start: 20151027
  9. APREPITANT. [Concomitant]
     Active Substance: APREPITANT
     Indication: PRODUCT USED FOR UNKNOWN INDICATION
     Route: 065
  10. DEXAMETHASONE. [Concomitant]
     Active Substance: DEXAMETHASONE
     Indication: PRODUCT USED FOR UNKNOWN INDICATION
     Route: 065

REACTIONS (3)
  - Vomiting [Recovering/Resolving]
  - Diarrhoea [Recovering/Resolving]
  - Nausea [Recovering/Resolving]

NARRATIVE: CASE EVENT DATE: 20151027
